FAERS Safety Report 14337197 (Version 1)
Quarter: 2017Q4

REPORT INFORMATION
  Report Type: Spontaneous
  Country: AT (occurrence: AT)
  Receive Date: 20171229
  Receipt Date: 20171229
  Transmission Date: 20180321
  Serious: Yes (Other)
  Sender: FDA-Public Use
  Company Number: AT-CIPLA LTD.-2017AT27790

PATIENT

DRUGS (17)
  1. TOPIRAMATE. [Suspect]
     Active Substance: TOPIRAMATE
     Dosage: 25 MG, UNK
     Route: 048
     Dates: start: 20141030, end: 20141106
  2. CIPRALEX [Concomitant]
     Active Substance: ESCITALOPRAM OXALATE
     Dosage: 15 MG, UNK
     Route: 048
     Dates: start: 20150319, end: 201601
  3. LYRICA [Concomitant]
     Active Substance: PREGABALIN
     Dosage: 300 MG, UNK
     Route: 048
     Dates: start: 20160209, end: 20160210
  4. LYRICA [Concomitant]
     Active Substance: PREGABALIN
     Dosage: 750-500 MG
     Route: 048
     Dates: start: 20150319, end: 201601
  5. CIPRALEX [Concomitant]
     Active Substance: ESCITALOPRAM OXALATE
     Dosage: 10 MG, UNK
     Route: 048
     Dates: start: 201401, end: 20141029
  6. LYRICA [Concomitant]
     Active Substance: PREGABALIN
     Dosage: 375 MG, UNK
     Route: 048
     Dates: start: 20160208, end: 20160208
  7. LYRICA [Concomitant]
     Active Substance: PREGABALIN
     Dosage: 450 MG, UNK
     Route: 048
     Dates: start: 201601, end: 20160207
  8. CIPRALEX [Concomitant]
     Active Substance: ESCITALOPRAM OXALATE
     Dosage: 10 MG, UNK
     Route: 048
     Dates: start: 20150313, end: 20150318
  9. LYRICA [Concomitant]
     Active Substance: PREGABALIN
     Dosage: 300 MG, UNK
     Route: 048
     Dates: start: 201401, end: 201405
  10. TOPIRAMATE. [Suspect]
     Active Substance: TOPIRAMATE
     Dosage: 100 MG, UNK
     Route: 048
     Dates: start: 20150309
  11. CIPRALEX [Concomitant]
     Active Substance: ESCITALOPRAM OXALATE
     Dosage: 10 MG, UNK
     Route: 048
     Dates: start: 201601
  12. LYRICA [Concomitant]
     Active Substance: PREGABALIN
     Dosage: 600 MG, UNK
     Route: 048
     Dates: start: 201405, end: 20150318
  13. RISPERIDONE. [Suspect]
     Active Substance: RISPERIDONE
     Dosage: 2 MG, UNK
     Route: 048
     Dates: start: 20141028, end: 20160204
  14. TOPIRAMATE. [Suspect]
     Active Substance: TOPIRAMATE
     Dosage: 50 MG, UNK
     Route: 048
     Dates: start: 20141107, end: 20150308
  15. TOPIRAMATE. [Suspect]
     Active Substance: TOPIRAMATE
     Dosage: 25 MG, UNK
     Route: 048
     Dates: start: 201601, end: 20160216
  16. LYRICA [Concomitant]
     Active Substance: PREGABALIN
     Dosage: 150 MG, UNK
     Route: 048
     Dates: start: 20160211, end: 20160214
  17. PANTOLOC [Concomitant]
     Active Substance: PANTOPRAZOLE SODIUM
     Dosage: UNK
     Route: 048
     Dates: start: 201405

REACTIONS (1)
  - Hepatic enzyme increased [Recovering/Resolving]

NARRATIVE: CASE EVENT DATE: 20160204
